FAERS Safety Report 6653135-7 (Version None)
Quarter: 2010Q1

REPORT INFORMATION
  Report Type: 
  Country: None (occurrence: None)
  Receive Date: 20100326
  Receipt Date: 20100323
  Transmission Date: 20100710
  Serious: Yes (Death)
  Sender: FDA-Public Use
  Company Number: PHHY2010JP07696

PATIENT
  Age: 72 Year
  Sex: Female
  Weight: 66 kg

DRUGS (5)
  1. METOPIRONE [Suspect]
     Indication: CUSHING'S SYNDROME
     Dosage: 1500 MG DAILY
     Route: 048
     Dates: start: 20071120, end: 20071129
  2. METOPIRONE [Suspect]
     Dosage: 100 MG DAILY
     Route: 048
     Dates: start: 20071201, end: 20071201
  3. METOPIRONE [Suspect]
     Dosage: 500 MG
  4. DIFLUCAN [Concomitant]
     Dosage: 100 MG, UNK
     Route: 048
     Dates: end: 20071201
  5. ADALAT CC [Concomitant]
     Dosage: 40 MG, UNK
     Route: 048
     Dates: end: 20071201

REACTIONS (5)
  - BLOOD PRESSURE DECREASED [None]
  - MECHANICAL VENTILATION [None]
  - PSEUDOMONAS INFECTION [None]
  - RESPIRATORY DISORDER [None]
  - SEPTIC SHOCK [None]
